FAERS Safety Report 6166892-3 (Version None)
Quarter: 2009Q2

REPORT INFORMATION
  Report Type: 
  Country: None (occurrence: None)
  Receive Date: 20090424
  Receipt Date: 20090415
  Transmission Date: 20091009
  Serious: Yes (Hospitalization)
  Sender: FDA-Public Use
  Company Number: B0569914A

PATIENT
  Age: 75 Year
  Sex: Male

DRUGS (8)
  1. ARIXTRA [Suspect]
     Indication: ATRIAL FIBRILLATION
     Dosage: 7.5MG PER DAY
     Route: 058
     Dates: start: 20090321, end: 20090322
  2. PLAVIX [Suspect]
     Dosage: 75MG PER DAY
     Route: 065
     Dates: start: 20020101
  3. NEBIVOLOL [Concomitant]
     Route: 065
     Dates: start: 20020101
  4. FOZITEC [Concomitant]
     Route: 065
     Dates: start: 20020101
  5. LESCOL [Concomitant]
     Route: 065
     Dates: start: 20020101
  6. AMIODARONE HCL [Concomitant]
     Route: 065
     Dates: start: 20090301
  7. ART 50 [Concomitant]
     Route: 065
     Dates: start: 20020101
  8. ZOLPIDEM TARTRATE [Concomitant]
     Route: 065
     Dates: start: 20020101

REACTIONS (6)
  - BRAIN HERNIATION [None]
  - CEREBELLAR HAEMATOMA [None]
  - DYSARTHRIA [None]
  - HAEMOGLOBIN DECREASED [None]
  - HEADACHE [None]
  - VOMITING [None]
